FAERS Safety Report 10262774 (Version 2)
Quarter: 2014Q2

REPORT INFORMATION
  Report Type: Report from Study
  Country: US (occurrence: US)
  Receive Date: 20140626
  Receipt Date: 20140626
  Transmission Date: 20141212
  Serious: Yes (Death)
  Sender: FDA-Public Use
  Company Number: US-MYLANLABS-2013S1015590

PATIENT
  Age: 55 Year
  Sex: Male

DRUGS (2)
  1. CLOZAPINE TABLETS [Suspect]
  2. CLOZAPINE TABLETS [Suspect]

REACTIONS (2)
  - Cardiac failure [Fatal]
  - Renal failure [Fatal]
